FAERS Safety Report 4504732-6 (Version None)
Quarter: 2004Q4

REPORT INFORMATION
  Report Type: 
  Country: None (occurrence: None)
  Receive Date: 20041118
  Receipt Date: 20030605
  Transmission Date: 20050328
  Serious: Yes (Hospitalization, Disabling)
  Sender: FDA-Public Use
  Company Number: US-MERCK-0306USA00638

PATIENT
  Age: 54 Year
  Sex: Female
  Weight: 104 kg

DRUGS (14)
  1. VIOXX [Suspect]
     Indication: OSTEOARTHRITIS
     Route: 048
     Dates: start: 19991001, end: 19991227
  2. VIOXX [Suspect]
     Route: 048
     Dates: start: 19990701, end: 19990930
  3. VIOXX [Suspect]
     Route: 048
     Dates: start: 19991228
  4. VIOXX [Suspect]
     Route: 048
  5. VIOXX [Suspect]
     Route: 048
     Dates: start: 20000229
  6. NORFLEX [Concomitant]
     Route: 065
  7. POLARAMINE [Concomitant]
     Route: 065
  8. ALPRAZOLAM [Concomitant]
     Route: 065
  9. NITROQUICK [Concomitant]
     Route: 065
  10. PEPCID [Concomitant]
     Route: 065
  11. DIOVAN HCT [Concomitant]
     Route: 065
  12. HYDROCODONE BITARTRATE AND ACETAMINOPHEN [Concomitant]
     Route: 065
  13. FOSAMAX [Concomitant]
     Route: 065
  14. PRAVACHOL [Concomitant]
     Route: 065

REACTIONS (16)
  - ADVERSE EVENT [None]
  - ANGINA PECTORIS [None]
  - BACK INJURY [None]
  - CATARACT [None]
  - CHEST PAIN [None]
  - CRYING [None]
  - DIABETES MELLITUS NON-INSULIN-DEPENDENT [None]
  - FIBROMYALGIA [None]
  - FOOT FRACTURE [None]
  - GLAUCOMA [None]
  - HALLUCINATION, AUDITORY [None]
  - HYPERKALAEMIA [None]
  - HYPERTENSION [None]
  - INJURY [None]
  - LIMB INJURY [None]
  - OEDEMA PERIPHERAL [None]
